FAERS Safety Report 8363483-0 (Version None)
Quarter: 2012Q1

REPORT INFORMATION
  Report Type: 
  Country: None (occurrence: None)
  Receive Date: 20120323
  Receipt Date: 20110613
  Transmission Date: 20120608
  Serious: Yes (Hospitalization)
  Sender: FDA-Public Use
  Company Number: 163-21880-11052153

PATIENT
  Age: 56 Year
  Sex: Male

DRUGS (4)
  1. VALTREX [Concomitant]
  2. TARKA (UDRAMIL) [Concomitant]
  3. CLARITIN [Concomitant]
  4. REVLIMID [Suspect]
     Indication: MULTIPLE MYELOMA
     Dosage: 10 MG, X 21 DAYS, PO
     Route: 048
     Dates: start: 20110418

REACTIONS (1)
  - PYREXIA [None]
